FAERS Safety Report 25434916 (Version 2)
Quarter: 2025Q3

REPORT INFORMATION
  Report Type: Spontaneous
  Country: US (occurrence: US)
  Receive Date: 20250613
  Receipt Date: 20250804
  Transmission Date: 20251021
  Serious: Yes (Hospitalization)
  Sender: VERTEX
  Company Number: US-VERTEX PHARMACEUTICALS-2025-009543

PATIENT
  Age: 35 Year
  Sex: Female

DRUGS (1)
  1. TRIKAFTA [Suspect]
     Active Substance: ELEXACAFTOR\IVACAFTOR\TEZACAFTOR
     Indication: Cystic fibrosis
     Dosage: 2 PILLS AM; 1 NIGHT
     Route: 048

REACTIONS (3)
  - Hospitalisation [Unknown]
  - Mental disorder [Unknown]
  - Malabsorption [Not Recovered/Not Resolved]
